FAERS Safety Report 19425031 (Version 2)
Quarter: 2021Q3

REPORT INFORMATION
  Report Type: Spontaneous
  Country: JP (occurrence: JP)
  Receive Date: 20210616
  Receipt Date: 20210707
  Transmission Date: 20211014
  Serious: Yes (Hospitalization, Other)
  Sender: FDA-Public Use
  Company Number: JP-ELI_LILLY_AND_COMPANY-JP202106003325

PATIENT

DRUGS (4)
  1. STRATTERA [Suspect]
     Active Substance: ATOMOXETINE HYDROCHLORIDE
     Indication: ATTENTION DEFICIT HYPERACTIVITY DISORDER
     Dosage: 20 DOSAGE FORM
     Route: 048
     Dates: start: 20210604, end: 20210604
  2. LUDIOMIL [Suspect]
     Active Substance: MAPROTILINE HYDROCHLORIDE
     Indication: DEPRESSION
     Dosage: 14 DOSAGE FORM
     Route: 048
     Dates: start: 20210604, end: 20210604
  3. LEXOTAN [Suspect]
     Active Substance: BROMAZEPAM
     Indication: NEUROSIS
     Dosage: 37 DOSAGE FORM
     Route: 048
     Dates: start: 20210604, end: 20210604
  4. DULOXETINE HYDROCHLORIDE. [Suspect]
     Active Substance: DULOXETINE HYDROCHLORIDE
     Indication: DEPRESSION
     Dosage: 510 MG
     Route: 048
     Dates: start: 20210604, end: 20210604

REACTIONS (2)
  - Suicide attempt [Recovered/Resolved]
  - Intentional overdose [Unknown]

NARRATIVE: CASE EVENT DATE: 20210604
